FAERS Safety Report 24948892 (Version 1)
Quarter: 2025Q1

REPORT INFORMATION
  Report Type: Spontaneous
  Country: CA (occurrence: CA)
  Receive Date: 20250210
  Receipt Date: 20250210
  Transmission Date: 20250408
  Serious: Yes (Other)
  Sender: NOVARTIS
  Company Number: CA-002147023-NVSC2025CA019084

PATIENT
  Sex: Female

DRUGS (1)
  1. EVEROLIMUS [Suspect]
     Active Substance: EVEROLIMUS
     Indication: Lung cancer metastatic
     Route: 065
     Dates: end: 202411

REACTIONS (3)
  - Malignant neoplasm progression [Unknown]
  - Disease progression [Unknown]
  - Pneumonitis [Unknown]
